FAERS Safety Report 23578736 (Version 1)
Quarter: 2024Q1

REPORT INFORMATION
  Report Type: Other
  Country: NL (occurrence: NL)
  Receive Date: 20240229
  Receipt Date: 20240229
  Transmission Date: 20240410
  Serious: Yes (Other)
  Sender: FDA-Public Use
  Company Number: NL-DEXPHARM-2024-0428

PATIENT
  Age: 83 Year
  Sex: Female
  Weight: 55 kg

DRUGS (5)
  1. OMEPRAZOLE [Interacting]
     Active Substance: OMEPRAZOLE
  2. ROMOSOZUMAB [Interacting]
     Active Substance: ROMOSOZUMAB
  3. ROSUVASTATIN [Concomitant]
     Active Substance: ROSUVASTATIN
  4. BUPRENORPHINE [Concomitant]
     Active Substance: BUPRENORPHINE
     Indication: Back pain
  5. OXAZEPAM [Concomitant]
     Active Substance: OXAZEPAM
     Indication: Back pain

REACTIONS (3)
  - Osteopenia [Unknown]
  - Fracture [Unknown]
  - Drug interaction [Unknown]
